FAERS Safety Report 15485534 (Version 4)
Quarter: 2018Q4

REPORT INFORMATION
  Report Type: Spontaneous
  Country: IT (occurrence: IT)
  Receive Date: 20181010
  Receipt Date: 20181206
  Transmission Date: 20190205
  Serious: Yes (Hospitalization, Other)
  Sender: FDA-Public Use
  Company Number: IT-BIOMARINAP-IT-2018-120235

PATIENT
  Age: 14 Year
  Sex: Male

DRUGS (3)
  1. ALDURAZYME [Suspect]
     Active Substance: LARONIDASE
     Indication: PRODUCT USED FOR UNKNOWN INDICATION
     Dosage: UNK
     Route: 041
     Dates: start: 20120504, end: 20180921
  2. ALDURAZYME [Suspect]
     Active Substance: LARONIDASE
     Dosage: UNK
     Route: 041
     Dates: start: 20181005
  3. CAPOTEN [Concomitant]
     Active Substance: CAPTOPRIL
     Indication: CARDIAC DISORDER

REACTIONS (2)
  - Corneal transplant [Unknown]
  - Corneal infection [Recovered/Resolved]

NARRATIVE: CASE EVENT DATE: 2018
